FAERS Safety Report 5650921-7 (Version None)
Quarter: 2008Q1

REPORT INFORMATION
  Report Type: 
  Country: None (occurrence: None)
  Receive Date: 20080131
  Receipt Date: 20071210
  Transmission Date: 20080703
  Serious: No
  Sender: FDA-Public Use
  Company Number: US200712002127

PATIENT
  Age: 51 Year
  Sex: Male
  Weight: 87.1 kg

DRUGS (8)
  1. BYETTA [Suspect]
     Indication: TYPE 2 DIABETES MELLITUS
     Dosage: 5 UG, 2/D, SUBCUTANEOUS ; 10 UG, 2/D, SUBCUTANEOUS ; OTHER, SUBCUTANEOUS
     Route: 058
     Dates: start: 20071001, end: 20071130
  2. BYETTA [Suspect]
     Indication: TYPE 2 DIABETES MELLITUS
     Dosage: 5 UG, 2/D, SUBCUTANEOUS ; 10 UG, 2/D, SUBCUTANEOUS ; OTHER, SUBCUTANEOUS
     Route: 058
     Dates: start: 20071210, end: 20071210
  3. BYETTA [Suspect]
     Indication: TYPE 2 DIABETES MELLITUS
     Dosage: 5 UG, 2/D, SUBCUTANEOUS ; 10 UG, 2/D, SUBCUTANEOUS ; OTHER, SUBCUTANEOUS
     Route: 058
     Dates: start: 20071201
  4. DRUG USED IN DIABETES [Concomitant]
  5. GLUCOPHAGE /USA/ (METFORMIN HYDROCHLORIDE) [Concomitant]
  6. LIPITOR [Concomitant]
  7. LOTENSIN [Concomitant]
  8. ASPIRIN [Concomitant]

REACTIONS (6)
  - ACCIDENTAL OVERDOSE [None]
  - FEELING JITTERY [None]
  - INCORRECT DOSE ADMINISTERED [None]
  - INJECTION SITE BRUISING [None]
  - NAUSEA [None]
  - STOMACH DISCOMFORT [None]
